FAERS Safety Report 18545342 (Version 1)
Quarter: 2020Q4

REPORT INFORMATION
  Report Type: Spontaneous
  Country: CA (occurrence: CA)
  Receive Date: 20201125
  Receipt Date: 20201125
  Transmission Date: 20210114
  Serious: Yes (Other)
  Sender: FDA-Public Use
  Company Number: CA-JNJFOC-20201127033

PATIENT
  Age: 50 Year
  Sex: Female

DRUGS (1)
  1. CONCERTA [Suspect]
     Active Substance: METHYLPHENIDATE HYDROCHLORIDE
     Indication: ATTENTION DEFICIT HYPERACTIVITY DISORDER
     Dosage: TWO 54 MG TABLETS IN THE MORNING AND ONE 54 MG TABLET AT NOON
     Route: 002
     Dates: start: 20130108

REACTIONS (3)
  - Incorrect dose administered [Unknown]
  - Off label use [Unknown]
  - Thyroid cancer stage III [Unknown]

NARRATIVE: CASE EVENT DATE: 20130108
